FAERS Safety Report 14745565 (Version 1)
Quarter: 2018Q2

REPORT INFORMATION
  Report Type: Other
  Country: FR (occurrence: FR)
  Receive Date: 20180411
  Receipt Date: 20180411
  Transmission Date: 20180711
  Serious: Yes (Hospitalization)
  Sender: FDA-Public Use
  Company Number: FR-MACLEODS PHARMACEUTICALS US LTD-MAC2018012532

PATIENT

DRUGS (7)
  1. ARIPIPRAZOLE TABLET [Suspect]
     Active Substance: ARIPIPRAZOLE
     Indication: DISINHIBITION
     Dosage: UNK
     Route: 048
  2. LOXAPAC [Suspect]
     Active Substance: LOXAPINE
     Indication: ABNORMAL BEHAVIOUR
     Dosage: 50 DROPS, QD
     Route: 048
     Dates: start: 20140805
  3. ARIPIPRAZOLE TABLET [Suspect]
     Active Substance: ARIPIPRAZOLE
     Indication: ABNORMAL BEHAVIOUR
     Dosage: 15 MG, QD
     Route: 048
     Dates: start: 20140805
  4. ARIPIPRAZOLE TABLET [Suspect]
     Active Substance: ARIPIPRAZOLE
     Indication: AGGRESSION
  5. ARIPIPRAZOLE TABLET [Suspect]
     Active Substance: ARIPIPRAZOLE
     Indication: HALLUCINATION
  6. LOXAPAC [Suspect]
     Active Substance: LOXAPINE
     Indication: HALLUCINATION
  7. LOXAPAC [Suspect]
     Active Substance: LOXAPINE
     Indication: DISINHIBITION
     Dosage: UNK
     Route: 065

REACTIONS (3)
  - Agitation [Unknown]
  - Off label use [Unknown]
  - Aggression [Unknown]

NARRATIVE: CASE EVENT DATE: 20141019
